FAERS Safety Report 19145079 (Version 5)
Quarter: 2021Q3

REPORT INFORMATION
  Report Type: Spontaneous
  Country: CA (occurrence: CA)
  Receive Date: 20210416
  Receipt Date: 20210805
  Transmission Date: 20211014
  Serious: Yes (Other)
  Sender: FDA-Public Use
  Company Number: CA-CELLTRION INC.-2020CA029298

PATIENT

DRUGS (10)
  1. INFLECTRA [Suspect]
     Active Substance: INFLIXIMAB-DYYB
     Dosage: 1300 MG, EVERY 6 WEEKS
     Route: 042
     Dates: start: 20201228
  2. INFLECTRA [Suspect]
     Active Substance: INFLIXIMAB-DYYB
     Dosage: 1300 MG, EVERY 4 WEEKS
     Route: 042
     Dates: start: 20210513, end: 20210610
  3. INFLECTRA [Suspect]
     Active Substance: INFLIXIMAB-DYYB
     Dosage: 1300 MG, EVERY 6 WEEKS
     Route: 042
     Dates: start: 20201228
  4. INFLECTRA [Suspect]
     Active Substance: INFLIXIMAB-DYYB
     Dosage: 1300 MG, EVERY 4 WEEKS
     Route: 042
     Dates: start: 20210310
  5. INFLECTRA [Suspect]
     Active Substance: INFLIXIMAB-DYYB
     Dosage: 1300 MG, EVERY 4 WEEKS
     Route: 042
     Dates: start: 20210416
  6. INFLECTRA [Suspect]
     Active Substance: INFLIXIMAB-DYYB
     Dosage: 1300 MG, EVERY 6 WEEKS
     Route: 042
     Dates: start: 20210211
  7. INFLECTRA [Suspect]
     Active Substance: INFLIXIMAB-DYYB
     Dosage: 1300 MG, EVERY 6 WEEKS
     Route: 042
     Dates: start: 20210723
  8. INFLECTRA [Suspect]
     Active Substance: INFLIXIMAB-DYYB
     Indication: COLITIS ULCERATIVE
     Dosage: 1300 MG, EVERY 6 WEEKS
     Route: 042
     Dates: start: 20201116
  9. INFLECTRA [Suspect]
     Active Substance: INFLIXIMAB-DYYB
     Dosage: 1300 MG, EVERY 4 WEEKS
     Route: 042
     Dates: start: 20210211
  10. IMURAN [Concomitant]
     Active Substance: AZATHIOPRINE
     Dosage: UNK
     Route: 065

REACTIONS (11)
  - Condition aggravated [Not Recovered/Not Resolved]
  - Weight increased [Unknown]
  - Infusion site swelling [Unknown]
  - Faecal calprotectin increased [Unknown]
  - Infusion site extravasation [Not Recovered/Not Resolved]
  - Urinary tract infection bacterial [Unknown]
  - COVID-19 [Unknown]
  - Infusion site pain [Unknown]
  - Off label use [Unknown]
  - Drug level increased [Unknown]
  - Injection site swelling [Unknown]

NARRATIVE: CASE EVENT DATE: 2020
